FAERS Safety Report 25828853 (Version 1)
Quarter: 2025Q3

REPORT INFORMATION
  Report Type: Report from Study
  Country: US (occurrence: US)
  Receive Date: 20250922
  Receipt Date: 20250922
  Transmission Date: 20251021
  Serious: Yes (Death, Other)
  Sender: DECIPHERA PHARMACEUTICALS
  Company Number: US-DECIPHERA PHARMACEUTICALS LLC-2025US001168

PATIENT
  Age: 20 Year
  Sex: Female

DRUGS (2)
  1. QINLOCK [Suspect]
     Active Substance: RIPRETINIB
     Indication: Peripheral nervous system neoplasm
     Dosage: 150 MILLIGRAM, QD
     Dates: start: 20250604
  2. QINLOCK [Suspect]
     Active Substance: RIPRETINIB
     Indication: Malignant nervous system neoplasm

REACTIONS (1)
  - Death [Fatal]

NARRATIVE: CASE EVENT DATE: 20250823
